FAERS Safety Report 8968796 (Version 1)
Quarter: 2012Q4

REPORT INFORMATION
  Report Type: 
  Country: US (occurrence: US)
  Receive Date: 20121218
  Receipt Date: 20121218
  Transmission Date: 20130627
  Serious: No
  Sender: FDA-Public Use
  Company Number: US-BRISTOL-MYERS SQUIBB COMPANY-16354706

PATIENT
  Age: 50 Year
  Sex: Male

DRUGS (5)
  1. ABILIFY [Suspect]
     Dosage: low dose of Abilify in Sep2011
     Dates: start: 201109, end: 201112
  2. DEPAKOTE [Suspect]
  3. LITHIUM [Suspect]
  4. CONCERTA [Suspect]
  5. SEROQUEL [Suspect]
     Dosage: 1 DF: 25-60 mg

REACTIONS (1)
  - Tremor [Recovered/Resolved]
